FAERS Safety Report 6457103-X (Version None)
Quarter: 2009Q4

REPORT INFORMATION
  Report Type: 
  Country: None (occurrence: None)
  Receive Date: 20091125
  Receipt Date: 20091117
  Transmission Date: 20100525
  Serious: Yes (Hospitalization)
  Sender: FDA-Public Use
  Company Number: B0598043B

PATIENT
  Sex: Female
  Weight: 47.2 kg

DRUGS (3)
  1. LAPATINIB [Suspect]
     Indication: BREAST CANCER
     Dosage: 1000MG PER DAY
     Route: 048
     Dates: start: 20091002
  2. TAXOTERE [Suspect]
     Indication: BREAST CANCER
     Dosage: 75MGM2 PER DAY
     Route: 042
     Dates: start: 20091029
  3. TRASTUZUMAB [Suspect]
     Indication: BREAST CANCER
     Dosage: 2MGK PER DAY
     Route: 042
     Dates: start: 20091002

REACTIONS (1)
  - NEUTROPENIA [None]
